FAERS Safety Report 5015517-9 (Version None)
Quarter: 2006Q2

REPORT INFORMATION
  Report Type: 
  Country: None (occurrence: None)
  Receive Date: 20060601
  Receipt Date: 20060522
  Transmission Date: 20061013
  Serious: Yes (Other)
  Sender: FDA-Public Use
  Company Number: ES-GILEAD-2006-0009614

PATIENT
  Age: 40 Year
  Sex: Female
  Weight: 65 kg

DRUGS (1)
  1. TRUVADA [Suspect]
     Route: 048
     Dates: start: 20060411

REACTIONS (4)
  - ANOREXIA [None]
  - DIARRHOEA [None]
  - DYSPEPSIA [None]
  - VOMITING [None]
